FAERS Safety Report 8600499-0 (Version None)
Quarter: 2012Q3

REPORT INFORMATION
  Report Type: 
  Country: None (occurrence: None)
  Receive Date: 20120808
  Receipt Date: 20120808
  Transmission Date: 20120928
  Serious: No
  Sender: FDA-Public Use
  Company Number: None

PATIENT
  Age: 84 Year
  Sex: Female
  Weight: 80.2867 kg

DRUGS (1)
  1. CIPROFLOXACIN HCL [Suspect]
     Indication: URINARY TRACT INFECTION
     Dosage: 2 X'S A DAY  1 TAB 2X A DAY
     Dates: start: 20120715, end: 20120717

REACTIONS (2)
  - SWELLING [None]
  - OEDEMA PERIPHERAL [None]
